FAERS Safety Report 15994371 (Version 1)
Quarter: 2019Q1

REPORT INFORMATION
  Report Type: Spontaneous
  Country: US (occurrence: US)
  Receive Date: 20190125
  Receipt Date: 20190125
  Transmission Date: 20190418
  Serious: No
  Sender: FDA-Public Use
  Company Number: None

PATIENT
  Age: 55 Year
  Sex: Male
  Weight: 153 kg

DRUGS (1)
  1. VANCOMYCIN [Suspect]
     Active Substance: VANCOMYCIN
     Route: 042
     Dates: start: 20180831, end: 20180928

REACTIONS (18)
  - Atrial fibrillation [None]
  - Organ failure [None]
  - Dyspnoea [None]
  - Drug reaction with eosinophilia and systemic symptoms [None]
  - Nausea [None]
  - Tachycardia [None]
  - Eosinophilia [None]
  - Dehydration [None]
  - Thrombophlebitis superficial [None]
  - Pruritus [None]
  - Skin exfoliation [None]
  - Diarrhoea [None]
  - Anaemia [None]
  - Proteinuria [None]
  - Tubulointerstitial nephritis [None]
  - Vomiting [None]
  - Asthenia [None]
  - Toe amputation [None]

NARRATIVE: CASE EVENT DATE: 20181005
